FAERS Safety Report 10231390 (Version 1)
Quarter: 2014Q2

REPORT INFORMATION
  Report Type: Spontaneous
  Country: FR (occurrence: FR)
  Receive Date: 20140611
  Receipt Date: 20140611
  Transmission Date: 20141212
  Serious: Yes (Hospitalization)
  Sender: FDA-Public Use
  Company Number: FR-PFIZER INC-2014154998

PATIENT
  Age: 79 Year
  Sex: Female

DRUGS (12)
  1. SUTENT [Suspect]
     Indication: RENAL CANCER
     Dosage: UNK
     Dates: start: 201108, end: 201111
  2. SUTENT [Suspect]
     Dosage: 37.5 MG, 1X/DAY
     Route: 048
     Dates: start: 201301, end: 201312
  3. SUTENT [Suspect]
     Dosage: 37.5 MG, 1X/DAY
     Route: 048
     Dates: start: 201401, end: 201402
  4. TEMERITDUO [Suspect]
     Dosage: UNK
     Route: 048
     Dates: start: 201303, end: 20130326
  5. TEMERITDUO [Suspect]
     Dosage: UNK
     Route: 048
     Dates: start: 2013, end: 201402
  6. KARDEGIC [Concomitant]
  7. AMLOR [Concomitant]
  8. HYPERIUM [Concomitant]
  9. MOPRAL [Concomitant]
  10. TEMERIT [Concomitant]
     Dosage: UNK
     Dates: start: 201106, end: 201303
  11. TEMERIT [Concomitant]
     Dosage: UNK
     Dates: start: 20130326, end: 2013
  12. LEVOTHYROX [Concomitant]
     Dosage: UNK
     Dates: start: 201302

REACTIONS (4)
  - Hyponatraemia [Recovered/Resolved]
  - Metastases to lung [None]
  - Renal tubular disorder [None]
  - Electrolyte depletion [None]
